FAERS Safety Report 23687621 (Version 1)
Quarter: 2024Q1

REPORT INFORMATION
  Report Type: Spontaneous
  Country: CN (occurrence: CN)
  Receive Date: 20240329
  Receipt Date: 20240329
  Transmission Date: 20240409
  Serious: Yes (Hospitalization)
  Sender: FDA-Public Use
  Company Number: CN-002147023-NVSC2024CN067172

PATIENT
  Age: 64 Year
  Sex: Female
  Weight: 61 kg

DRUGS (3)
  1. CARBAMAZEPINE [Suspect]
     Active Substance: CARBAMAZEPINE
     Indication: Trigeminal neuralgia
     Dosage: 0.5 DOSAGE FORM, TID
     Route: 048
     Dates: start: 20240227, end: 20240301
  2. GABAPENTIN [Suspect]
     Active Substance: GABAPENTIN
     Indication: Trigeminal neuralgia
     Dosage: 1 DOSAGE FORM, TID
     Route: 048
     Dates: start: 20240301, end: 20240304
  3. GABAPENTIN [Suspect]
     Active Substance: GABAPENTIN
     Indication: Rash

REACTIONS (9)
  - Drug eruption [Recovering/Resolving]
  - Rash macular [Recovering/Resolving]
  - Erythema [Recovering/Resolving]
  - Pruritus [Recovering/Resolving]
  - Blister [Recovering/Resolving]
  - Mucosal ulceration [Recovering/Resolving]
  - Rash [Recovering/Resolving]
  - Papule [Recovering/Resolving]
  - Skin wound [Unknown]

NARRATIVE: CASE EVENT DATE: 20240228
